FAERS Safety Report 11297757 (Version 1)
Quarter: 2015Q3

REPORT INFORMATION
  Report Type: Spontaneous
  Country: US (occurrence: US)
  Receive Date: 20150722
  Receipt Date: 20150722
  Transmission Date: 20151125
  Serious: No
  Sender: FDA-Public Use
  Company Number: US-ELI_LILLY_AND_COMPANY-US200908001034

PATIENT
  Sex: Female

DRUGS (1)
  1. HUMATROPE [Suspect]
     Active Substance: SOMATROPIN

REACTIONS (5)
  - Glucose tolerance impaired [Unknown]
  - Mononucleosis syndrome [Unknown]
  - Malaise [Unknown]
  - Blood glucose decreased [Unknown]
  - Tooth loss [Unknown]
